FAERS Safety Report 4856914-1 (Version None)
Quarter: 2005Q4

REPORT INFORMATION
  Report Type: 
  Country: None (occurrence: None)
  Receive Date: 20051219
  Receipt Date: 20050204
  Transmission Date: 20060501
  Serious: No
  Sender: FDA-Public Use
  Company Number: US-GLAXOSMITHKLINE-A0543931A

PATIENT
  Age: 54 Year
  Sex: Female

DRUGS (4)
  1. NICODERM CQ [Suspect]
     Dates: start: 20050118, end: 20050201
  2. NICODERM CQ [Suspect]
  3. COMBIVENT [Concomitant]
  4. NEBULIZER [Concomitant]

REACTIONS (5)
  - APPLICATION SITE PRURITUS [None]
  - ASTHMA [None]
  - NICOTINE DEPENDENCE [None]
  - SINUSITIS [None]
  - VIRAL INFECTION [None]
